FAERS Safety Report 17507782 (Version 2)
Quarter: 2020Q2

REPORT INFORMATION
  Report Type: Spontaneous
  Country: US (occurrence: US)
  Receive Date: 20200306
  Receipt Date: 20200406
  Transmission Date: 20200713
  Serious: Yes (Other)
  Sender: FDA-Public Use
  Company Number: US-GW PHARMA-202002USGW00817

PATIENT

DRUGS (4)
  1. TRANXENE [Concomitant]
     Active Substance: CLORAZEPATE DIPOTASSIUM
     Indication: PRODUCT USED FOR UNKNOWN INDICATION
     Dosage: 82.5 MILLIGRAM, QD (30MG/22.5MG/30MG)
     Route: 065
  2. EPIDIOLEX [Suspect]
     Active Substance: CANNABIDIOL
     Indication: LENNOX-GASTAUT SYNDROME
     Dosage: 9.64 MG/KG/DAY, 540 MILLIGRAM, BID
     Route: 048
     Dates: start: 20190225
  3. TEGRETOL [Concomitant]
     Active Substance: CARBAMAZEPINE
     Indication: PRODUCT USED FOR UNKNOWN INDICATION
     Dosage: 1500 MILLIGRAM, QD (600MG/400MG/500MG)
     Route: 065
  4. CLOBAZAM. [Concomitant]
     Active Substance: CLOBAZAM
     Indication: PRODUCT USED FOR UNKNOWN INDICATION
     Dosage: 10 MILLIGRAM, QD (AT BEDTIME)
     Route: 065

REACTIONS (4)
  - Staphylococcal infection [Unknown]
  - Rash pustular [Unknown]
  - Staphylococcal infection [Unknown]
  - Rash pustular [Unknown]

NARRATIVE: CASE EVENT DATE: 2019
